FAERS Safety Report 4794961-9 (Version None)
Quarter: 2005Q4

REPORT INFORMATION
  Report Type: 
  Country: None (occurrence: None)
  Receive Date: 20051006
  Receipt Date: 20050923
  Transmission Date: 20060501
  Serious: Yes (Hospitalization)
  Sender: FDA-Public Use
  Company Number: SP-2005-002548

PATIENT
  Age: 79 Year
  Sex: Female

DRUGS (3)
  1. OLMETEC [Suspect]
     Indication: ESSENTIAL HYPERTENSION
     Dates: start: 20050508, end: 20050622
  2. DAIVONEX [Concomitant]
  3. TRIVASTAL [Concomitant]

REACTIONS (1)
  - DERMATITIS EXFOLIATIVE [None]
